FAERS Safety Report 19001982 (Version 1)
Quarter: 2021Q1

REPORT INFORMATION
  Report Type: Spontaneous
  Country: ES (occurrence: ES)
  Receive Date: 20210312
  Receipt Date: 20210312
  Transmission Date: 20210420
  Serious: Yes (Life-Threatening, Hospitalization, Other)
  Sender: FDA-Public Use
  Company Number: ES-SUN PHARMACEUTICAL INDUSTRIES LTD-2021R1-285646

PATIENT
  Sex: Female

DRUGS (6)
  1. BETAMETHASONE. [Suspect]
     Active Substance: BETAMETHASONE
     Indication: PREMATURE LABOUR
     Dosage: UNK
     Route: 064
  2. INDOMETHACIN. [Suspect]
     Active Substance: INDOMETHACIN
     Indication: PRODUCT USED FOR UNKNOWN INDICATION
     Dosage: UNK
     Route: 064
  3. ATOSIBAN [Suspect]
     Active Substance: ATOSIBAN
     Indication: PRETERM PREMATURE RUPTURE OF MEMBRANES
  4. BETAMETHASONE. [Suspect]
     Active Substance: BETAMETHASONE
     Indication: PRETERM PREMATURE RUPTURE OF MEMBRANES
  5. ATOSIBAN [Suspect]
     Active Substance: ATOSIBAN
     Indication: PREMATURE LABOUR
     Dosage: UNK
     Route: 064
  6. PROGESTERONE. [Suspect]
     Active Substance: PROGESTERONE
     Indication: PRODUCT USED FOR UNKNOWN INDICATION
     Dosage: UNK
     Route: 064

REACTIONS (6)
  - Skin lesion [Unknown]
  - Infection [Unknown]
  - Shock [Unknown]
  - Premature baby [Unknown]
  - Haemorrhage intracranial [Unknown]
  - Foetal exposure during pregnancy [Unknown]
